FAERS Safety Report 17147035 (Version 1)
Quarter: 2019Q4

REPORT INFORMATION
  Report Type: Spontaneous
  Country: FR (occurrence: FR)
  Receive Date: 20191212
  Receipt Date: 20191212
  Transmission Date: 20200122
  Serious: Yes (Hospitalization)
  Sender: FDA-Public Use
  Company Number: FR-ZYDUS-021833

PATIENT
  Age: 37 Year
  Sex: Female

DRUGS (9)
  1. LANSOPRAZOLE. [Suspect]
     Active Substance: LANSOPRAZOLE
     Indication: HYPERCHOLESTEROLAEMIA
     Route: 065
  2. NEBIVOLOL. [Concomitant]
     Active Substance: NEBIVOLOL
  3. ASPIRINE PROTECT [Concomitant]
     Active Substance: ASPIRIN
     Route: 048
  4. VENLAFAXINE/VENLAFAXINE HYDROCHLORIDE [Suspect]
     Active Substance: VENLAFAXINE HYDROCHLORIDE
     Indication: DEPRESSION
     Route: 065
  5. LORAZEPAM. [Concomitant]
     Active Substance: LORAZEPAM
  6. HUMALOG [Concomitant]
     Active Substance: INSULIN LISPRO
  7. TOVIAZ [Concomitant]
     Active Substance: FESOTERODINE FUMARATE
  8. STAGID [Concomitant]
     Active Substance: METFORMIN PAMOATE
     Route: 048
  9. ALDACTAZINE [Concomitant]
     Active Substance: ALTHIAZIDE\SPIRONOLACTONE
     Route: 048

REACTIONS (2)
  - Myalgia [Not Recovered/Not Resolved]
  - Product use in unapproved indication [Unknown]

NARRATIVE: CASE EVENT DATE: 2015
